FAERS Safety Report 5122932-1 (Version None)
Quarter: 2006Q4

REPORT INFORMATION
  Report Type: 
  Country: None (occurrence: None)
  Receive Date: 20061005
  Receipt Date: 20060927
  Transmission Date: 20070319
  Serious: Yes (Death)
  Sender: FDA-Public Use
  Company Number: 2006117528

PATIENT
  Age: 33 Year
  Sex: Male

DRUGS (5)
  1. ZOLOFT [Suspect]
     Indication: ANGER
     Dosage: (50 MG)
     Dates: start: 20050401
  2. ZOLOFT [Suspect]
     Indication: ANXIETY
     Dosage: (50 MG)
     Dates: start: 20050401
  3. ZOLOFT [Suspect]
     Indication: DEPRESSION
     Dosage: (50 MG)
     Dates: start: 20050401
  4. IBUPROFEN [Suspect]
  5. ALCOHOL (ETHANOL) [Suspect]

REACTIONS (1)
  - BLOOD ALCOHOL INCREASED [None]
